FAERS Safety Report 12244819 (Version 20)
Quarter: 2017Q2

REPORT INFORMATION
  Report Type: Report from Study
  Country: CA (occurrence: CA)
  Receive Date: 20160407
  Receipt Date: 20170517
  Transmission Date: 20170830
  Serious: Yes (Hospitalization, Other)
  Sender: FDA-Public Use
  Company Number: CA-ROCHE-707466

PATIENT
  Age: 46 Year
  Sex: Female
  Weight: 43.13 kg

DRUGS (28)
  1. TUMS [Concomitant]
     Active Substance: CALCIUM CARBONATE
  2. ALENDRONATE [Concomitant]
     Active Substance: ALENDRONATE SODIUM
  3. ACETAMINOPHEN. [Concomitant]
     Active Substance: ACETAMINOPHEN
     Indication: PREMEDICATION
     Route: 048
     Dates: start: 20100520, end: 20140716
  4. FORTEO [Concomitant]
     Active Substance: TERIPARATIDE
  5. RITUXAN [Suspect]
     Active Substance: RITUXIMAB
     Indication: RHEUMATOID ARTHRITIS
     Dosage: SECOND INFUSION CANCELLED, LAST INFUSION DATE: 09-MAY-2012 ? PREVIOUS RITUXIMAB RECEIVED ON 03/MAY/2
     Route: 042
  6. OMEPRAZOLE. [Concomitant]
     Active Substance: OMEPRAZOLE
  7. METHYLPREDNISOLONE. [Concomitant]
     Active Substance: METHYLPREDNISOLONE
     Indication: PREMEDICATION
     Route: 042
     Dates: start: 20100520
  8. PREDNISONE. [Concomitant]
     Active Substance: PREDNISONE
  9. BENADRYL [Suspect]
     Active Substance: DIPHENHYDRAMINE HYDROCHLORIDE
     Route: 048
     Dates: start: 20140716
  10. PREGABALIN. [Suspect]
     Active Substance: PREGABALIN
     Route: 065
     Dates: start: 20170428
  11. DIDROCAL [Concomitant]
     Active Substance: CALCIUM CARBONATE\ETIDRONATE DISODIUM
  12. TYLENOL [Concomitant]
     Active Substance: ACETAMINOPHEN
  13. LYRICA [Concomitant]
     Active Substance: PREGABALIN
  14. AIROMIR [Concomitant]
     Active Substance: ALBUTEROL SULFATE
  15. SPIRIVA [Concomitant]
     Active Substance: TIOTROPIUM BROMIDE MONOHYDRATE
  16. SENOKOT [Concomitant]
     Active Substance: SENNOSIDES
  17. PREDNISONE. [Concomitant]
     Active Substance: PREDNISONE
  18. PREGABALIN. [Suspect]
     Active Substance: PREGABALIN
     Indication: PRODUCT USED FOR UNKNOWN INDICATION
     Route: 065
  19. HYDROMORPH CONTIN [Concomitant]
     Active Substance: HYDROMORPHONE
  20. GABAPENTIN. [Concomitant]
     Active Substance: GABAPENTIN
  21. BENADRYL [Suspect]
     Active Substance: DIPHENHYDRAMINE HYDROCHLORIDE
     Indication: PREMEDICATION
     Route: 048
     Dates: start: 20100520, end: 20140702
  22. MORPHINE [Concomitant]
     Active Substance: MORPHINE
  23. LORAZEPAM. [Concomitant]
     Active Substance: LORAZEPAM
  24. DIAZEPAM. [Concomitant]
     Active Substance: DIAZEPAM
  25. PROPRANOLOL [Concomitant]
     Active Substance: PROPRANOLOL HYDROCHLORIDE
  26. METOPROLOL. [Concomitant]
     Active Substance: METOPROLOL
  27. CIPRALEX [Concomitant]
     Active Substance: ESCITALOPRAM OXALATE
  28. ARTHROTEC [Concomitant]
     Active Substance: DICLOFENAC SODIUM\MISOPROSTOL

REACTIONS (37)
  - Wrist fracture [Recovered/Resolved]
  - Wound infection bacterial [Unknown]
  - Chronic obstructive pulmonary disease [Unknown]
  - Osteoporosis [Not Recovered/Not Resolved]
  - Neck pain [Unknown]
  - Headache [Recovered/Resolved]
  - Malaise [Unknown]
  - Headache [Recovered/Resolved]
  - Dehydration [Unknown]
  - Hypertension [Not Recovered/Not Resolved]
  - Localised infection [Unknown]
  - Blood pressure increased [Unknown]
  - Candida infection [Not Recovered/Not Resolved]
  - Blood electrolytes decreased [Unknown]
  - Hypertension [Unknown]
  - Influenza [Unknown]
  - Cough [Not Recovered/Not Resolved]
  - Chills [Unknown]
  - Limb injury [Recovered/Resolved]
  - Carpal tunnel syndrome [Recovered/Resolved]
  - Abasia [Unknown]
  - Localised infection [Recovering/Resolving]
  - Dizziness [Recovered/Resolved]
  - Vomiting [Unknown]
  - Asthenia [Not Recovered/Not Resolved]
  - Infusion related reaction [Unknown]
  - Heart rate increased [Unknown]
  - Dyspnoea [Unknown]
  - Dyspnoea [Recovered/Resolved]
  - Feeling of body temperature change [Not Recovered/Not Resolved]
  - Diarrhoea [Not Recovered/Not Resolved]
  - Weight decreased [Not Recovered/Not Resolved]
  - Viral upper respiratory tract infection [Recovering/Resolving]
  - Rib fracture [Unknown]
  - Blood pressure systolic increased [Recovering/Resolving]
  - Anxiety [Unknown]
  - Diarrhoea [Not Recovered/Not Resolved]

NARRATIVE: CASE EVENT DATE: 20100602
